FAERS Safety Report 8484528-3 (Version None)
Quarter: 2012Q3

REPORT INFORMATION
  Report Type: 
  Country: None (occurrence: None)
  Receive Date: 20120703
  Receipt Date: 20120621
  Transmission Date: 20120928
  Serious: Yes (Hospitalization)
  Sender: FDA-Public Use
  Company Number: JP-VERTEX PHARMACEUTICALS INC.-AE-2012-005827

PATIENT
  Age: 60 Year
  Sex: Female

DRUGS (5)
  1. URSO 250 [Concomitant]
     Route: 048
     Dates: start: 20071205
  2. PEGINTERFERON ALFA-2B [Concomitant]
     Indication: HEPATITIS C
     Route: 058
     Dates: start: 20120316, end: 20120413
  3. ZOLPIDEM [Concomitant]
     Route: 048
  4. TELAVIC (TELAPREVIR) [Suspect]
     Indication: HEPATITIS C
     Route: 048
     Dates: start: 20120316, end: 20120417
  5. RIBAVIRIN [Concomitant]
     Indication: HEPATITIS C
     Route: 048
     Dates: start: 20120316, end: 20120417

REACTIONS (4)
  - MATERNAL EXPOSURE DURING PREGNANCY [None]
  - PYELONEPHRITIS ACUTE [None]
  - METABOLIC ACIDOSIS [None]
  - SEPSIS [None]
